FAERS Safety Report 15222494 (Version 1)
Quarter: 2018Q3

REPORT INFORMATION
  Report Type: Spontaneous
  Country: US (occurrence: US)
  Receive Date: 20180731
  Receipt Date: 20180731
  Transmission Date: 20181010
  Serious: No
  Sender: FDA-Public Use
  Company Number: US-ENDO PHARMACEUTICALS INC-2018-025937

PATIENT
  Sex: Male

DRUGS (3)
  1. LAMICTAL [Concomitant]
     Active Substance: LAMOTRIGINE
     Indication: DEPRESSION
     Dosage: 400 MG, OD
  2. PREDNISONE TABLETS [Suspect]
     Active Substance: PREDNISONE
     Indication: SKIN DISCOLOURATION
     Dosage: UNKNOWN
     Dates: start: 2018
  3. LAMICTAL [Concomitant]
     Active Substance: LAMOTRIGINE
     Dosage: 350 MG, DAILY

REACTIONS (1)
  - Drug ineffective [Unknown]
